FAERS Safety Report 7397424-X (Version None)
Quarter: 2011Q2

REPORT INFORMATION
  Report Type: 
  Country: None (occurrence: None)
  Receive Date: 20110406
  Receipt Date: 20110328
  Transmission Date: 20111010
  Serious: Yes (Hospitalization, Other)
  Sender: FDA-Public Use
  Company Number: US-ASTRAZENECA-2010SE60675

PATIENT
  Age: 81 Year
  Sex: Female

DRUGS (1)
  1. NEXIUM [Suspect]
     Route: 048

REACTIONS (20)
  - CONCUSSION [None]
  - CARDIAC DISORDER [None]
  - ARTHRALGIA [None]
  - ADVERSE EVENT [None]
  - TRANSFUSION [None]
  - URINARY TRACT INFECTION [None]
  - BACK INJURY [None]
  - MUSCULAR WEAKNESS [None]
  - POSTOPERATIVE RESPIRATORY DISTRESS [None]
  - CONFUSIONAL STATE [None]
  - LIMB DISCOMFORT [None]
  - PARONYCHIA [None]
  - ROAD TRAFFIC ACCIDENT [None]
  - FALL [None]
  - GROIN PAIN [None]
  - OSTEOARTHRITIS [None]
  - TENDON RUPTURE [None]
  - MUSCLE RUPTURE [None]
  - COMPLEX REGIONAL PAIN SYNDROME [None]
  - DRUG DOSE OMISSION [None]
